FAERS Safety Report 12439571 (Version 1)
Quarter: 2016Q2

REPORT INFORMATION
  Report Type: Spontaneous
  Country: US (occurrence: US)
  Receive Date: 20160606
  Receipt Date: 20160606
  Transmission Date: 20160815
  Serious: No
  Sender: FDA-Public Use
  Company Number: US-BAUSCH-BL-2015-018476

PATIENT
  Sex: Male

DRUGS (11)
  1. VENLAFAXINE [Suspect]
     Active Substance: VENLAFAXINE HYDROCHLORIDE
     Indication: SEIZURE
  2. LAMICTAL [Suspect]
     Active Substance: LAMOTRIGINE
     Indication: BIPOLAR DISORDER
  3. LAMICTAL [Suspect]
     Active Substance: LAMOTRIGINE
     Indication: CONVULSION PROPHYLAXIS
  4. VENLAFAXINE [Suspect]
     Active Substance: VENLAFAXINE HYDROCHLORIDE
     Indication: BIPOLAR I DISORDER
     Route: 065
     Dates: start: 201506
  5. WELLBUTRIN SR [Suspect]
     Active Substance: BUPROPION HYDROCHLORIDE
     Indication: SEIZURE
  6. WELLBUTRIN SR [Suspect]
     Active Substance: BUPROPION HYDROCHLORIDE
     Indication: BIPOLAR DISORDER
  7. PROZAC [Suspect]
     Active Substance: FLUOXETINE HYDROCHLORIDE
     Indication: SEIZURE
  8. WELLBUTRIN SR [Suspect]
     Active Substance: BUPROPION HYDROCHLORIDE
     Indication: BIPOLAR I DISORDER
     Route: 065
     Dates: start: 2011, end: 2014
  9. LAMICTAL [Suspect]
     Active Substance: LAMOTRIGINE
     Indication: BIPOLAR I DISORDER
     Route: 065
     Dates: start: 2001
  10. PROZAC [Suspect]
     Active Substance: FLUOXETINE HYDROCHLORIDE
     Indication: BIPOLAR I DISORDER
     Route: 065
     Dates: start: 201407
  11. LAMICTAL [Suspect]
     Active Substance: LAMOTRIGINE
     Indication: SEIZURE

REACTIONS (6)
  - Mental disorder [Unknown]
  - Memory impairment [Unknown]
  - Depression [Recovering/Resolving]
  - Drug ineffective [Unknown]
  - Mania [Unknown]
  - Abdominal discomfort [Unknown]
